FAERS Safety Report 5557089-6 (Version None)
Quarter: 2007Q4

REPORT INFORMATION
  Report Type: 
  Country: None (occurrence: None)
  Receive Date: 20071214
  Receipt Date: 20071205
  Transmission Date: 20080405
  Serious: Yes (Other)
  Sender: FDA-Public Use
  Company Number: US-JNJFOC-20071202425

PATIENT
  Sex: Female
  Weight: 87.09 kg

DRUGS (5)
  1. DURAGESIC-100 [Suspect]
     Indication: FIBROMYALGIA
     Route: 062
  2. FENTANYL TRANSDERMAL SYSTEM [Suspect]
     Indication: FIBROMYALGIA
     Route: 062
  3. FENTANYL TRANSDERMAL SYSTEM [Suspect]
     Indication: FIBROMYALGIA
     Route: 062
  4. METHADONE HCL [Concomitant]
     Indication: FIBROMYALGIA
     Route: 048
  5. ZANAFLEX [Concomitant]
     Indication: FIBROMYALGIA
     Dosage: 4 MG, 8MG AM, 12 MG PM
     Route: 048

REACTIONS (6)
  - ANXIETY [None]
  - BLOOD CHOLESTEROL INCREASED [None]
  - DEPRESSION [None]
  - HYPERTENSION [None]
  - MULTIPLE SCLEROSIS [None]
  - NAUSEA [None]
